FAERS Safety Report 4635398-2 (Version None)
Quarter: 2005Q2

REPORT INFORMATION
  Report Type: 
  Country: None (occurrence: None)
  Receive Date: 20050414
  Receipt Date: 20050406
  Transmission Date: 20051028
  Serious: Yes (Death)
  Sender: FDA-Public Use
  Company Number: US-SANOFI-SYNTHELABO-A03200501012

PATIENT
  Sex: Male
  Weight: 65.76 kg

DRUGS (11)
  1. PLAVIX [Suspect]
     Indication: MYOCARDIAL INFARCTION
     Route: 048
     Dates: start: 20010101
  2. PLAVIX [Suspect]
     Indication: CEREBROVASCULAR ACCIDENT
     Route: 048
     Dates: start: 20010101
  3. SYNTHROID [Concomitant]
     Route: 048
  4. ACCUPRIL [Concomitant]
     Route: 048
     Dates: start: 20040301
  5. LIPITOR [Concomitant]
     Route: 048
     Dates: start: 20010301
  6. CARDIZEM [Concomitant]
     Dosage: UNK
     Route: 048
     Dates: end: 20050101
  7. ASPIRIN [Concomitant]
     Route: 048
  8. SINGULAIR [Concomitant]
     Dosage: UNK
     Route: 048
  9. MULTI-VITAMIN [Concomitant]
     Dosage: UNK
     Route: 048
  10. IBUPROFEN [Concomitant]
     Dosage: UNK
     Route: 048
     Dates: start: 20050101
  11. PREDNISONE TAB [Concomitant]
     Route: 048

REACTIONS (7)
  - CEREBROVASCULAR ACCIDENT [None]
  - DEATH [None]
  - HAEMORRHAGE [None]
  - MYOCARDIAL INFARCTION [None]
  - PNEUMONIA [None]
  - POST PROCEDURAL HAEMORRHAGE [None]
  - PROSTATECTOMY [None]
